FAERS Safety Report 18790162 (Version 1)
Quarter: 2021Q1

REPORT INFORMATION
  Report Type: Other
  Country: US (occurrence: US)
  Receive Date: 20210125
  Receipt Date: 20210125
  Transmission Date: 20210419
  Serious: No
  Sender: FDA-Public Use
  Company Number: US-ACORDA-ACO_166482_2020

PATIENT
  Age: 56 Year
  Sex: Male

DRUGS (2)
  1. GABAPENTIN. [Concomitant]
     Active Substance: GABAPENTIN
     Indication: PRODUCT USED FOR UNKNOWN INDICATION
     Dosage: UNK
     Route: 065
  2. AMPYRA [Suspect]
     Active Substance: DALFAMPRIDINE
     Indication: MULTIPLE SCLEROSIS
     Dosage: 10 MILLIGRAM, BID (Q12H)
     Route: 048
     Dates: start: 20200810

REACTIONS (7)
  - Hypokinesia [Unknown]
  - Product dose omission issue [Unknown]
  - Incontinence [Not Recovered/Not Resolved]
  - Fall [Unknown]
  - Tremor [Unknown]
  - Mobility decreased [Unknown]
  - Product dose omission issue [Unknown]

NARRATIVE: CASE EVENT DATE: 202012
